FAERS Safety Report 8300982-1 (Version None)
Quarter: 2012Q2

REPORT INFORMATION
  Report Type: 
  Country: None (occurrence: None)
  Receive Date: 20120420
  Receipt Date: 20120417
  Transmission Date: 20120825
  Serious: Yes (Life-Threatening, Hospitalization)
  Sender: FDA-Public Use
  Company Number: US-BRISTOL-MYERS SQUIBB COMPANY-16446890

PATIENT
  Age: 57 Year
  Sex: Female
  Weight: 86 kg

DRUGS (14)
  1. DEXAMETHASONE [Concomitant]
     Indication: NAUSEA
     Dates: start: 20120220
  2. ESTRADIOL [Concomitant]
     Indication: OESTROGEN REPLACEMENT THERAPY
     Dates: start: 20110101
  3. FENTANYL-100 [Concomitant]
     Indication: OROPHARYNGEAL PAIN
     Dates: start: 20120220
  4. METFORMIN HCL [Concomitant]
     Indication: DIABETES MELLITUS
     Dates: start: 20100101
  5. CETUXIMAB [Suspect]
     Indication: HEAD AND NECK CANCER
     Dosage: HELD ON 05MAR2012
     Route: 042
     Dates: start: 20120227
  6. CARVEDILOL [Concomitant]
     Indication: BLOOD PRESSURE
     Dates: start: 20100101
  7. LISINOPRIL [Concomitant]
     Indication: BLOOD PRESSURE
     Dates: start: 20100101
  8. LORAZEPAM [Concomitant]
     Indication: NAUSEA
     Dates: start: 20120220
  9. CISPLATIN [Suspect]
     Indication: HEAD AND NECK CANCER
     Route: 042
     Dates: start: 20120220
  10. ONDANSETRON [Concomitant]
     Indication: NAUSEA
     Dates: start: 20120220
  11. CRESTOR [Concomitant]
     Indication: BLOOD CHOLESTEROL INCREASED
     Dates: start: 20110101
  12. LORAZEPAM [Concomitant]
     Indication: ANXIETY
     Dates: start: 20120220
  13. FLUOROURACIL [Suspect]
     Indication: HEAD AND NECK CANCER
     Dosage: EVERYDAY FOR 4 DAYS LAST DOSE:24FEB2012
     Route: 042
     Dates: start: 20120220
  14. LOVENOX [Concomitant]
     Indication: THROMBOSIS
     Dates: start: 20120101

REACTIONS (2)
  - NEUTROPENIA [None]
  - STOMATITIS [None]
